FAERS Safety Report 11615665 (Version 1)
Quarter: 2015Q4

REPORT INFORMATION
  Report Type: Spontaneous
  Country: US (occurrence: US)
  Receive Date: 20151009
  Receipt Date: 20151009
  Transmission Date: 20160304
  Serious: Yes (Hospitalization)
  Sender: FDA-Public Use
  Company Number: US-CIPLA LTD.-2015US07806

PATIENT

DRUGS (3)
  1. HYDROXYCHLOROQUINE [Suspect]
     Active Substance: HYDROXYCHLOROQUINE
     Dosage: 6 G, UNK
     Route: 065
  2. TRAMADOL. [Suspect]
     Active Substance: TRAMADOL
     Dosage: 1.5 G, UNK
     Route: 065
  3. MELOXICAM. [Suspect]
     Active Substance: MELOXICAM
     Dosage: 450 MG, UNK
     Route: 065

REACTIONS (6)
  - Unresponsive to stimuli [Unknown]
  - Sedation [Unknown]
  - Seizure [Unknown]
  - Overdose [Unknown]
  - Hyperkalaemia [Recovered/Resolved]
  - Sinus tachycardia [Unknown]
